FAERS Safety Report 4746740-6 (Version None)
Quarter: 2005Q3

REPORT INFORMATION
  Report Type: 
  Country: None (occurrence: None)
  Receive Date: 20050817
  Receipt Date: 20050803
  Transmission Date: 20060218
  Serious: Yes (Hospitalization, Other)
  Sender: FDA-Public Use
  Company Number: DE-GLAXOSMITHKLINE-D0047223A

PATIENT
  Age: 83 Year
  Sex: Male
  Weight: 70 kg

DRUGS (5)
  1. ZOVIRAX [Suspect]
     Indication: ENCEPHALITIS HERPES
     Route: 042
     Dates: start: 20050728, end: 20050808
  2. PHENHYDAN [Concomitant]
     Indication: SIMPLE PARTIAL SEIZURES
     Dosage: 100MG UNKNOWN
     Route: 048
     Dates: start: 20050728, end: 20050808
  3. LASIX [Concomitant]
     Indication: CARDIAC FAILURE
     Dosage: 40MG UNKNOWN
     Route: 048
     Dates: start: 20050728, end: 20050808
  4. DELIX [Concomitant]
     Indication: HYPERTENSION
     Dosage: 2.5MG UNKNOWN
     Route: 048
     Dates: start: 20050728, end: 20050808
  5. MIRTAZAPINE [Concomitant]
     Indication: DEPRESSION
     Dosage: 15MG UNKNOWN
     Route: 065
     Dates: start: 20050728, end: 20050808

REACTIONS (2)
  - INFUSION SITE REACTION [None]
  - PARALYSIS [None]
